FAERS Safety Report 4549270-X (Version None)
Quarter: 2005Q1

REPORT INFORMATION
  Report Type: 
  Country: None (occurrence: None)
  Receive Date: 20050110
  Receipt Date: 20050110
  Transmission Date: 20050727
  Serious: Yes (Other)
  Sender: FDA-Public Use
  Company Number: None

PATIENT
  Sex: Female
  Weight: 92.0802 kg

DRUGS (3)
  1. PERCOCET [Suspect]
     Indication: BACK PAIN
     Dosage: PO TID - QID
     Route: 048
     Dates: start: 20040901, end: 20041001
  2. LOVASTATIN [Concomitant]
  3. INSULIN [Concomitant]

REACTIONS (3)
  - NAUSEA [None]
  - PHARMACEUTICAL PRODUCT COMPLAINT [None]
  - VOMITING [None]
